FAERS Safety Report 8484583-0 (Version None)
Quarter: 2012Q3

REPORT INFORMATION
  Report Type: 
  Country: None (occurrence: None)
  Receive Date: 20120703
  Receipt Date: 20120402
  Transmission Date: 20120928
  Serious: No
  Sender: FDA-Public Use
  Company Number: US-TEVA-329146USA

PATIENT
  Sex: Male
  Weight: 76.272 kg

DRUGS (15)
  1. NUVIGIL [Suspect]
     Indication: SEDATION
     Dosage: 125 MILLIGRAM;
     Route: 048
     Dates: start: 20120130
  2. CURCUMIN [Concomitant]
     Indication: VITAMIN SUPPLEMENTATION
     Route: 048
  3. IMIPRAMINE HCL [Concomitant]
     Indication: INCONTINENCE
     Dosage: 12.5 MILLIGRAM;
     Route: 048
  4. AVODART [Concomitant]
     Indication: PROSTATE CANCER
     Dosage: .25 MILLIGRAM;
     Route: 048
  5. MILK THISTLE [Concomitant]
     Indication: VITAMIN SUPPLEMENTATION
     Dosage: 750 MILLIGRAM;
     Route: 048
  6. ASPIRIN [Concomitant]
     Dosage: 81 MILLIGRAM;
     Route: 048
  7. QUERCETIN [Concomitant]
     Indication: VITAMIN SUPPLEMENTATION
     Dosage: 250 MILLIGRAM;
     Route: 048
  8. RESVERATROL [Concomitant]
     Indication: VITAMIN SUPPLEMENTATION
     Dosage: 500 MILLIGRAM;
     Route: 048
  9. ASCORBIC ACID [Concomitant]
     Indication: VITAMIN SUPPLEMENTATION
     Dosage: 500 MILLIGRAM;
     Route: 048
  10. MEGA GREEN TEA [Concomitant]
     Indication: VITAMIN SUPPLEMENTATION
     Route: 048
  11. SOY ISOFLAVIN [Concomitant]
     Indication: VITAMIN SUPPLEMENTATION
     Route: 048
  12. MEGA LYCOPENE [Concomitant]
     Indication: VITAMIN SUPPLEMENTATION
     Route: 048
  13. RITALIN [Concomitant]
     Indication: ATTENTION DEFICIT/HYPERACTIVITY DISORDER
     Dosage: 3.3333 MILLIGRAM;
     Route: 048
  14. FISH OIL [Concomitant]
     Indication: VITAMIN SUPPLEMENTATION
     Dosage: 2000 MILLIGRAM;
     Route: 048
  15. LECITHIN [Concomitant]
     Indication: VITAMIN SUPPLEMENTATION
     Dosage: 600 MILLIGRAM;
     Route: 048

REACTIONS (3)
  - RASH PRURITIC [None]
  - INAPPROPRIATE SCHEDULE OF DRUG ADMINISTRATION [None]
  - OFF LABEL USE [None]
